FAERS Safety Report 12332964 (Version 1)
Quarter: 2016Q2

REPORT INFORMATION
  Report Type: Spontaneous
  Country: US (occurrence: US)
  Receive Date: 20160504
  Receipt Date: 20160504
  Transmission Date: 20160815
  Serious: No
  Sender: FDA-Public Use
  Company Number: US-ROCHE-1656828

PATIENT
  Sex: Female
  Weight: 51.3 kg

DRUGS (1)
  1. ESBRIET [Suspect]
     Active Substance: PIRFENIDONE
     Indication: IDIOPATHIC PULMONARY FIBROSIS
     Dosage: 2403 MG?CAPSULES BY MOUTH THREE TIMES DAILY
     Route: 048
     Dates: start: 20150519

REACTIONS (1)
  - Gastric disorder [Unknown]
